FAERS Safety Report 8581461-3 (Version None)
Quarter: 2012Q3

REPORT INFORMATION
  Report Type: 
  Country: None (occurrence: None)
  Receive Date: 20120809
  Receipt Date: 20120803
  Transmission Date: 20120928
  Serious: Yes (Life-Threatening)
  Sender: FDA-Public Use
  Company Number: JP-ASTRAZENECA-2012SE53449

PATIENT
  Age: 70 Year
  Sex: Male

DRUGS (6)
  1. CIPROFLOXACIN HCL [Suspect]
     Dosage: DOSE UNKNOWN
     Route: 065
  2. DIPRIVAN [Suspect]
     Dosage: 1%
     Route: 042
  3. PANCURONIUM BROMIDE [Concomitant]
     Dosage: DOSE UNKNOWN
     Route: 065
  4. ADSORBED TETANUS TOXOID [Concomitant]
     Dosage: DOSE UNKNOWN
     Route: 065
  5. PENICILLIN G [Concomitant]
     Dosage: 2400 X 104 U/DAY
     Route: 065
  6. MIDAZOLAM [Concomitant]
     Dosage: DOSE UNKNOWN
     Route: 065

REACTIONS (1)
  - INTERSTITIAL LUNG DISEASE [None]
